FAERS Safety Report 16023666 (Version 1)
Quarter: 2019Q1

REPORT INFORMATION
  Report Type: Spontaneous
  Country: US (occurrence: US)
  Receive Date: 20190301
  Receipt Date: 20190301
  Transmission Date: 20190418
  Serious: Yes (Life-Threatening, Hospitalization)
  Sender: FDA-Public Use
  Company Number: US-MYLANLABS-2019M1017565

PATIENT
  Age: 47 Year
  Sex: Male

DRUGS (2)
  1. BACLOFEN. [Suspect]
     Active Substance: BACLOFEN
     Indication: BLADDER SPASM
     Dosage: THREE TIMES A DAY
     Route: 065
  2. LORAZEPAM. [Suspect]
     Active Substance: LORAZEPAM
     Indication: WITHDRAWAL SYNDROME
     Dosage: 2 MILLIGRAM, Q6H
     Route: 042

REACTIONS (6)
  - Psychotic disorder [Recovered/Resolved]
  - Muscle spasms [Recovered/Resolved]
  - Incorrect product administration duration [Recovered/Resolved]
  - Respiratory failure [Recovered/Resolved]
  - Off label use [Recovered/Resolved]
  - Withdrawal syndrome [Recovered/Resolved]
